FAERS Safety Report 4650097-9 (Version None)
Quarter: 2005Q2

REPORT INFORMATION
  Report Type: 
  Country: None (occurrence: None)
  Receive Date: 20050428
  Receipt Date: 20050330
  Transmission Date: 20051028
  Serious: No
  Sender: FDA-Public Use
  Company Number: A01200501889

PATIENT
  Age: 40 Year
  Sex: Female

DRUGS (1)
  1. STILNOX - (ZOLPIDEM) - TABLET- 10 MG/ TABLET- 10 MG [Suspect]
     Indication: DRUG ABUSER
     Dosage: 4-10  TABLETS PER DAY/ 10 MG OD; ORAL
     Route: 048

REACTIONS (3)
  - DRUG ABUSER [None]
  - GRAND MAL CONVULSION [None]
  - LIVER FUNCTION TEST ABNORMAL [None]
